FAERS Safety Report 8625341-3 (Version None)
Quarter: 2012Q3

REPORT INFORMATION
  Report Type: 
  Country: None (occurrence: None)
  Receive Date: 20120827
  Receipt Date: 20120821
  Transmission Date: 20120928
  Serious: Yes (Other)
  Sender: FDA-Public Use
  Company Number: US-PFIZER INC-2012132198

PATIENT
  Age: 86 Year
  Sex: Female

DRUGS (3)
  1. LATANOPROST [Suspect]
     Dosage: UNK
  2. LATANOPROST [Suspect]
     Dosage: UNK
  3. LATANOPROST [Suspect]
     Dosage: UNK

REACTIONS (8)
  - MALAISE [None]
  - MOVEMENT DISORDER [None]
  - FATIGUE [None]
  - STRESS [None]
  - HIP FRACTURE [None]
  - FALL [None]
  - HERNIA [None]
  - ALOPECIA AREATA [None]
